FAERS Safety Report 18580790 (Version 1)
Quarter: 2020Q4

REPORT INFORMATION
  Report Type: Spontaneous
  Country: DE (occurrence: DE)
  Receive Date: 20201204
  Receipt Date: 20201204
  Transmission Date: 20210114
  Serious: Yes (Hospitalization, Other)
  Sender: FDA-Public Use
  Company Number: DE-ASTRAZENECA-2020SF60866

PATIENT
  Age: 670 Month
  Sex: Female

DRUGS (1)
  1. DURVALUMAB. [Suspect]
     Active Substance: DURVALUMAB
     Indication: NON-SMALL CELL LUNG CANCER
     Route: 042
     Dates: start: 20190814, end: 20200327

REACTIONS (4)
  - Dyspnoea exertional [Unknown]
  - COVID-19 pneumonia [Unknown]
  - Hyponatraemic seizure [Unknown]
  - Scoliosis [Unknown]

NARRATIVE: CASE EVENT DATE: 201909
